FAERS Safety Report 7434686-4 (Version None)
Quarter: 2011Q2

REPORT INFORMATION
  Report Type: 
  Country: None (occurrence: None)
  Receive Date: 20110415
  Receipt Date: 20110411
  Transmission Date: 20111010
  Serious: Yes (Other)
  Sender: FDA-Public Use
  Company Number: CIP11000623

PATIENT
  Age: 77 Year
  Sex: Female

DRUGS (2)
  1. ALENDRONATE SODIUM [Suspect]
     Indication: OSTEOPOROSIS POSTMENOPAUSAL
     Dosage: 5 MG DAILY, ORAL
     Route: 048
     Dates: start: 20011001, end: 20080101
  2. DIDRONEL [Suspect]
     Indication: OSTEOPOROSIS POSTMENOPAUSAL
     Dosage: 4.8 G OVER 12 WEEKS, ORAL
     Route: 048
     Dates: start: 19990101, end: 20011001

REACTIONS (6)
  - LOW TURNOVER OSTEOPATHY [None]
  - PATHOLOGICAL FRACTURE [None]
  - FATIGUE [None]
  - FEMUR FRACTURE [None]
  - IMPAIRED HEALING [None]
  - FALL [None]
